FAERS Safety Report 14168310 (Version 2)
Quarter: 2018Q2

REPORT INFORMATION
  Report Type: Spontaneous
  Country: US (occurrence: US)
  Receive Date: 20171107
  Receipt Date: 20180515
  Transmission Date: 20180711
  Serious: No
  Sender: FDA-Public Use
  Company Number: US-SA-2017SA134235

PATIENT
  Age: 61 Year
  Sex: Female
  Weight: 127 kg

DRUGS (21)
  1. LEVOTHYROXINE. [Concomitant]
     Active Substance: LEVOTHYROXINE
  2. RISPERIDONE. [Concomitant]
     Active Substance: RISPERIDONE
  3. DILTIAZEM. [Concomitant]
     Active Substance: DILTIAZEM
  4. DULOXETINE. [Concomitant]
     Active Substance: DULOXETINE
  5. OMEPRAZOLE. [Concomitant]
     Active Substance: OMEPRAZOLE
  6. EZETIMIBE. [Concomitant]
     Active Substance: EZETIMIBE
  7. GABAPENTIN. [Concomitant]
     Active Substance: GABAPENTIN
  8. METOPROLOL. [Concomitant]
     Active Substance: METOPROLOL
  9. CARBIDOPA. [Concomitant]
     Active Substance: CARBIDOPA
  10. LOSARTAN. [Concomitant]
     Active Substance: LOSARTAN
  11. PRADAXA [Concomitant]
     Active Substance: DABIGATRAN ETEXILATE MESYLATE
  12. CHOLECALCIFEROL [Concomitant]
     Active Substance: CHOLECALCIFEROL
  13. BRIMONIDINE [Concomitant]
     Active Substance: BRIMONIDINE TARTRATE
  14. LANTUS [Concomitant]
     Active Substance: INSULIN GLARGINE
  15. TOPIRAMATE. [Concomitant]
     Active Substance: TOPIRAMATE
  16. VENTOLIN [Concomitant]
     Active Substance: ALBUTEROL SULFATE
  17. SOLOSTAR [Concomitant]
     Active Substance: DEVICE
     Indication: TYPE 2 DIABETES MELLITUS
     Dates: start: 2017
  18. TOUJEO [Suspect]
     Active Substance: INSULIN GLARGINE
     Indication: TYPE 2 DIABETES MELLITUS
     Dosage: DOSE:50 UNIT(S)
     Route: 051
     Dates: start: 2017
  19. ALENDRONATE [Concomitant]
     Active Substance: ALENDRONATE SODIUM
  20. CYCLOBENZAPRINE. [Concomitant]
     Active Substance: CYCLOBENZAPRINE
  21. GEMFIBROZIL. [Concomitant]
     Active Substance: GEMFIBROZIL

REACTIONS (1)
  - Product use issue [Unknown]
